FAERS Safety Report 21198272 (Version 1)
Quarter: 2022Q3

REPORT INFORMATION
  Report Type: Report from Study
  Country: AT (occurrence: AT)
  Receive Date: 20220811
  Receipt Date: 20220811
  Transmission Date: 20221026
  Serious: Yes (Hospitalization)
  Sender: FDA-Public Use
  Company Number: AT-ABBVIE-22K-009-4496626-00

PATIENT
  Sex: Male

DRUGS (1)
  1. HUMIRA [Suspect]
     Active Substance: ADALIMUMAB
     Indication: Product used for unknown indication
     Route: 058
     Dates: start: 202104, end: 202109

REACTIONS (4)
  - Gastrointestinal inflammation [Recovering/Resolving]
  - Drug ineffective [Recovering/Resolving]
  - Flatulence [Unknown]
  - Diarrhoea [Unknown]
